FAERS Safety Report 20994537 (Version 3)
Quarter: 2022Q3

REPORT INFORMATION
  Report Type: Spontaneous
  Country: US (occurrence: US)
  Receive Date: 20220622
  Receipt Date: 20220713
  Transmission Date: 20221026
  Serious: Yes (Life-Threatening, Hospitalization, Other)
  Sender: FDA-Public Use
  Company Number: US-MLMSERVICE-20220613-3606572-1

PATIENT
  Age: 10 Year
  Sex: Male

DRUGS (2)
  1. NOREPINEPHRINE BITARTRATE [Suspect]
     Active Substance: NOREPINEPHRINE BITARTRATE
     Indication: Blood pressure management
     Dosage: UNK
  2. PROPOFOL [Suspect]
     Active Substance: PROPOFOL
     Indication: Sedative therapy
     Dosage: AVERAGE RATE OF 8.3 MG/KG/H (3-10.8 MG/KG/H) OVER 65 HOURS (INFUSION)

REACTIONS (2)
  - Propofol infusion syndrome [Recovered/Resolved]
  - Off label use [Unknown]
